FAERS Safety Report 15975288 (Version 3)
Quarter: 2019Q1

REPORT INFORMATION
  Report Type: Spontaneous
  Country: SE (occurrence: SE)
  Receive Date: 20190218
  Receipt Date: 20190222
  Transmission Date: 20190418
  Serious: Yes (Other)
  Sender: FDA-Public Use
  Company Number: SE-009507513-1902SWE004221

PATIENT
  Age: 72 Year
  Sex: Male

DRUGS (3)
  1. MOMETASONE FUROATE. [Suspect]
     Active Substance: MOMETASONE FUROATE
     Indication: DACRYOSTENOSIS ACQUIRED
     Dosage: 50 UNK 50UG/ACTUATION: 1 ACTUATION IN EACH NOSTRIL
     Route: 045
     Dates: start: 20190111, end: 20190118
  2. GLUCOSAMINE [Concomitant]
     Active Substance: GLUCOSAMINE
     Dosage: UNK
     Dates: start: 20170101, end: 20190123
  3. FICORTRIL [Concomitant]
     Dates: start: 20190111, end: 20190118

REACTIONS (1)
  - Urticaria [Not Recovered/Not Resolved]

NARRATIVE: CASE EVENT DATE: 20190117
